FAERS Safety Report 12736224 (Version 3)
Quarter: 2016Q3

REPORT INFORMATION
  Report Type: Spontaneous
  Country: FR (occurrence: FR)
  Receive Date: 20160912
  Receipt Date: 20160919
  Transmission Date: 20161109
  Serious: Yes (Hospitalization)
  Sender: FDA-Public Use
  Company Number: FR-TEVA-690233ROM

PATIENT
  Age: 56 Year
  Sex: Female

DRUGS (7)
  1. LEVOCETIRIZINE TEVA 5 MG [Suspect]
     Active Substance: LEVOCETIRIZINE
     Dosage: 3 DOSAGE FORMS DAILY;
     Route: 048
  2. LEVOCETIRIZINE TEVA 5 MG [Suspect]
     Active Substance: LEVOCETIRIZINE
     Dosage: 4 DOSAGE FORMS DAILY;
     Route: 048
     Dates: start: 201512, end: 201512
  3. LEVOCETIRIZINE TEVA 5 MG [Suspect]
     Active Substance: LEVOCETIRIZINE
     Dosage: 3 DOSAGE FORMS DAILY;
     Route: 048
     Dates: end: 20160713
  4. LEVOCETIRIZINE TEVA 5 MG [Suspect]
     Active Substance: LEVOCETIRIZINE
     Dosage: 2 DOSAGE FORMS DAILY;
     Route: 048
     Dates: start: 201604
  5. XANAX [Concomitant]
     Active Substance: ALPRAZOLAM
     Dosage: IF NEED
     Route: 048
  6. LEVOCETIRIZINE TEVA 5 MG [Suspect]
     Active Substance: LEVOCETIRIZINE
     Dosage: 4 DOSAGE FORMS DAILY;
     Route: 048
     Dates: start: 201510
  7. LEVOCETIRIZINE TEVA 5 MG [Suspect]
     Active Substance: LEVOCETIRIZINE
     Indication: FOOD ALLERGY
     Dosage: ONE TO TWO TABLETS DAILY
     Route: 048
     Dates: start: 201501

REACTIONS (10)
  - Gastroenteritis viral [Recovered/Resolved]
  - Weight increased [Recovered/Resolved]
  - Lymphopenia [Unknown]
  - Hepatitis [Recovered/Resolved]
  - Diarrhoea [Recovered/Resolved]
  - Drug-induced liver injury [Recovered/Resolved]
  - Somnolence [Recovered/Resolved]
  - Fatigue [Recovered/Resolved]
  - Tremor [Recovered/Resolved]
  - Pyrexia [Recovered/Resolved]

NARRATIVE: CASE EVENT DATE: 2015
